FAERS Safety Report 9698273 (Version 1)
Quarter: 2013Q4

REPORT INFORMATION
  Report Type: Spontaneous
  Country: US (occurrence: None)
  Receive Date: 20131115
  Receipt Date: 20131115
  Transmission Date: 20140711
  Serious: Yes (Other)
  Sender: FDA-Public Use
  Company Number: 001608580A

PATIENT
  Age: 12 Year
  Sex: Female

DRUGS (6)
  1. PROACTIV SOLUTION RENEWING CLEANSER [Suspect]
     Indication: ACNE
     Dosage: ONCE DAILY DERMAL
     Route: 061
     Dates: start: 20130706, end: 20130720
  2. PROACTIV SOLUTION REPAIRING TREATMENT [Suspect]
     Indication: ACNE
     Dosage: ONCE DAILY DERMAL
     Route: 061
     Dates: start: 20130706, end: 20130720
  3. PROACTIV SOLUTION DEEP CLEANSING WASH [Suspect]
     Indication: ACNE
     Dosage: ONCE DAILY DERMAL
     Route: 061
     Dates: start: 20130706, end: 20130720
  4. PROACTIV SOLUTION BLACKHEAD DISSOLVING GEL [Suspect]
     Indication: ACNE
     Dosage: ONCE DAILY DERMAL
     Route: 061
     Dates: start: 20130706, end: 20130720
  5. PROACTIV SOLUTIONS ADVANCED BLEMISH TREATMENT [Suspect]
     Indication: ACNE
     Dosage: ONCE DAILY DERMAL
     Route: 061
     Dates: start: 20130706, end: 20130720
  6. VITACLEAR VITAMIN SUPPLEMENT [Concomitant]

REACTIONS (3)
  - Rash [None]
  - Swelling face [None]
  - Sunburn [None]
